FAERS Safety Report 8614147-7 (Version None)
Quarter: 2012Q3

REPORT INFORMATION
  Report Type: 
  Country: None (occurrence: None)
  Receive Date: 20120813
  Receipt Date: 20120813
  Transmission Date: 20120928
  Serious: Yes (Hospitalization)
  Sender: FDA-Public Use
  Company Number: None

PATIENT
  Sex: Male
  Weight: 73 kg

DRUGS (4)
  1. RITUXIMAB (MOAB C2B8 ANTI CD20, CHIMERIC) [Suspect]
     Dosage: 750MG
  2. CYCLOPHOSPHAMIDE [Suspect]
     Dosage: 1500 MG
  3. VINCRISTINE SULFATE [Suspect]
     Dosage: 1.5MG
  4. DOXORUBICIN HYDROCHLORIDE [Suspect]
     Dosage: 75 MG

REACTIONS (8)
  - ASTHENIA [None]
  - HYPOTENSION [None]
  - PNEUMONIA [None]
  - ATRIAL FIBRILLATION [None]
  - MALNUTRITION [None]
  - PULMONARY EMBOLISM [None]
  - DYSPNOEA [None]
  - PSEUDOMONAS INFECTION [None]
